FAERS Safety Report 6528841-5 (Version None)
Quarter: 2010Q1

REPORT INFORMATION
  Report Type: 
  Country: None (occurrence: None)
  Receive Date: 20100106
  Receipt Date: 20091228
  Transmission Date: 20100710
  Serious: No
  Sender: FDA-Public Use
  Company Number: US-B.I. PHARMACEUTICALS,INC./RIDGEFIELD-2009-BP-14958BP

PATIENT
  Sex: Female

DRUGS (2)
  1. ZANTAC 75 [Suspect]
     Indication: DYSPEPSIA
     Dosage: 150 MG
     Route: 048
     Dates: start: 20091228
  2. METFORMIN HYDROCHLORIDE [Concomitant]
     Indication: DIABETES MELLITUS

REACTIONS (1)
  - DIZZINESS [None]
